FAERS Safety Report 5676026-7 (Version None)
Quarter: 2008Q2

REPORT INFORMATION
  Report Type: 
  Country: None (occurrence: None)
  Receive Date: 20080312
  Receipt Date: 20070404
  Transmission Date: 20081010
  Serious: Yes (Hospitalization)
  Sender: FDA-Public Use
  Company Number: 0701211

PATIENT
  Age: 81 Year
  Sex: Female
  Weight: 62.5964 kg

DRUGS (4)
  1. KIRKLAND NAPROXEN SODIUM 400S [Suspect]
     Indication: ARTHRALGIA
     Dosage: 220MG,MORNING + EVENING
     Dates: start: 20050601, end: 20061221
  2. PRILOSEC [Concomitant]
  3. VITAMIN B [Concomitant]
  4. CITRACAL  (CALCIUM CITRATE) [Concomitant]

REACTIONS (4)
  - ANAEMIA [None]
  - GASTRIC ULCER HAEMORRHAGE [None]
  - OSTEOPOROSIS [None]
  - SYNCOPE [None]
